FAERS Safety Report 6312385-X (Version None)
Quarter: 2009Q3

REPORT INFORMATION
  Report Type: 
  Country: None (occurrence: None)
  Receive Date: 20090813
  Receipt Date: 20090804
  Transmission Date: 20100115
  Serious: Yes (Hospitalization)
  Sender: FDA-Public Use
  Company Number: MSTR-NO-0907S-0140

PATIENT
  Age: 70 Year
  Sex: Male
  Weight: 45 kg

DRUGS (1)
  1. METASTRON [Suspect]
     Indication: METASTATIC PAIN
     Dosage: 2.9 ML, SINGLE DOSE, I.V.; , SINGLE DOSE, I.V.
     Route: 042
     Dates: start: 20090527, end: 20090527

REACTIONS (5)
  - CEREBRAL INFARCTION [None]
  - EATING DISORDER [None]
  - MALIGNANT NEOPLASM PROGRESSION [None]
  - METASTATIC PAIN [None]
  - PLATELET COUNT DECREASED [None]
